FAERS Safety Report 9050516 (Version 1)
Quarter: 2013Q1

REPORT INFORMATION
  Report Type: Spontaneous
  Country: NO (occurrence: NO)
  Receive Date: 20130205
  Receipt Date: 20130205
  Transmission Date: 20140127
  Serious: Yes (Other)
  Sender: FDA-Public Use
  Company Number: PHHY2013NO009534

PATIENT
  Age: 24 Year
  Sex: Male

DRUGS (7)
  1. ETOPOSIDE [Suspect]
  2. BLEOMYCIN [Suspect]
  3. CYCLOPHOSPHAMIDE [Suspect]
  4. PREDNISOLONE [Suspect]
  5. PROCARBAZINE [Suspect]
  6. VINCRISTINE [Suspect]
  7. DOXORUBICIN [Suspect]

REACTIONS (1)
  - Osteonecrosis [Unknown]
